FAERS Safety Report 11121156 (Version 2)
Quarter: 2015Q2

REPORT INFORMATION
  Report Type: Spontaneous
  Country: US (occurrence: US)
  Receive Date: 20150519
  Receipt Date: 20150626
  Transmission Date: 20150821
  Serious: Yes (Hospitalization)
  Sender: FDA-Public Use
  Company Number: US-BAYER-2015-245280

PATIENT
  Age: 24 Year
  Sex: Female
  Weight: 69.39 kg

DRUGS (3)
  1. MOTRIN [Concomitant]
     Active Substance: IBUPROFEN
     Dosage: 800 MG, TID PRN
     Route: 048
     Dates: start: 201305
  2. MIRENA [Suspect]
     Active Substance: LEVONORGESTREL
     Indication: CONTRACEPTION
     Dosage: 20 MCG/24HR, CONT
     Route: 015
     Dates: start: 20121219, end: 20130510
  3. VALTREX [Concomitant]
     Active Substance: VALACYCLOVIR HYDROCHLORIDE
     Dosage: 500 MG, QD
     Route: 048
     Dates: start: 201305

REACTIONS (4)
  - Uterine perforation [None]
  - Abdominal pain [None]
  - Device issue [None]
  - Injury [None]

NARRATIVE: CASE EVENT DATE: 201305
